FAERS Safety Report 7494656-7 (Version None)
Quarter: 2011Q2

REPORT INFORMATION
  Report Type: 
  Country: None (occurrence: None)
  Receive Date: 20110520
  Receipt Date: 20080502
  Transmission Date: 20111010
  Serious: Yes (Hospitalization, Other)
  Sender: FDA-Public Use
  Company Number: US-BAYER-200821775NA

PATIENT
  Age: 62 Year
  Sex: Female
  Weight: 60 kg

DRUGS (20)
  1. INSULIN [Concomitant]
     Dosage: 2-4 UNITS 4
     Route: 042
     Dates: start: 20050517
  2. TRASYLOL [Suspect]
     Indication: VENOUS REPAIR
  3. RHINOCORT [Concomitant]
     Dosage: 0.032
     Route: 045
     Dates: start: 20040713
  4. AMOXICILLIN [Concomitant]
     Dosage: 500 MG +#8211; 2 GM DAILY
     Dates: start: 20040514
  5. SPIRONOLACTONE AND HYDROCHLOROTHIAZIDE [Concomitant]
     Dosage: 25/25, 1 DAILY AS NEEDED
     Route: 048
     Dates: start: 20030303
  6. NITROGLYCERIN [Concomitant]
     Dosage: 4-20
     Route: 042
     Dates: start: 20050517, end: 20050518
  7. ACETYLCYSTEINE [Concomitant]
     Dosage: UNK
     Dates: start: 20050501
  8. HYDROCHLOROTHIAZIDE [Concomitant]
     Dosage: UNK
     Dates: start: 20041113
  9. TRIMETHOPRIM [Concomitant]
     Dosage: 150MG
     Route: 042
     Dates: start: 20050517
  10. TRASYLOL [Suspect]
     Indication: MITRAL VALVE REPLACEMENT
     Dosage: 2 MILLION, THEN 50/HOUR
     Route: 042
     Dates: start: 20050517, end: 20050518
  11. TRASYLOL [Suspect]
     Indication: ARTERIAL REPAIR
  12. ALDARA [Concomitant]
     Dosage: 8 WEEKS
     Route: 061
     Dates: start: 20050407
  13. LASIX [Concomitant]
     Dosage: 20-60MG
     Route: 042
     Dates: start: 20050517
  14. ANCEF [Concomitant]
     Dosage: 1GMX 2
     Route: 042
     Dates: start: 20050517
  15. BUMEX [Concomitant]
     Dosage: 2 MG
     Route: 042
     Dates: start: 20050517
  16. ASTELIN [Concomitant]
     Dosage: 137 MCG, 2 SPRAYS DAILY AS NEEDED
     Route: 048
     Dates: start: 20050317
  17. SOLU-MEDROL [Concomitant]
     Dosage: 500MG
     Route: 042
     Dates: start: 20050517
  18. LEVOTHYROXINE SODIUM [Concomitant]
     Dosage: 0.125 MG, ?TABLET DAILY
     Route: 048
  19. HEPARIN [Concomitant]
     Dosage: 25,000 UNITS
     Route: 042
     Dates: start: 20050517
  20. MORPHINE SULFATE [Concomitant]
     Dosage: 2MG
     Route: 042
     Dates: start: 20050517

REACTIONS (16)
  - ADVERSE EVENT [None]
  - DEPRESSION [None]
  - PNEUMONIA [None]
  - INJURY [None]
  - UNEVALUABLE EVENT [None]
  - FEAR [None]
  - ANXIETY [None]
  - NAUSEA [None]
  - EMOTIONAL DISTRESS [None]
  - INSOMNIA [None]
  - RENAL INJURY [None]
  - PAIN [None]
  - STRESS [None]
  - RENAL FAILURE [None]
  - ANHEDONIA [None]
  - FLASHBACK [None]
